FAERS Safety Report 4745269-9 (Version None)
Quarter: 2005Q3

REPORT INFORMATION
  Report Type: 
  Country: None (occurrence: None)
  Receive Date: 20050815
  Receipt Date: 20050803
  Transmission Date: 20060218
  Serious: Yes (Hospitalization)
  Sender: FDA-Public Use
  Company Number: FR-BRISTOL-MYERS SQUIBB COMPANY-13063052

PATIENT
  Age: 88 Year
  Sex: Female

DRUGS (6)
  1. GLUCOPHAGE [Suspect]
     Indication: DIABETES MELLITUS
     Route: 048
  2. DIAMICRON [Suspect]
     Indication: DIABETES MELLITUS
     Route: 048
     Dates: start: 20050616, end: 20050616
  3. DAFLON [Suspect]
     Route: 048
  4. DITROPAN [Suspect]
     Route: 048
  5. TRIATEC [Suspect]
     Indication: HYPERTENSION
     Route: 048
  6. ALDALIX [Suspect]
     Dosage: DOSAGE FORM = 50 MG/20 MG
     Route: 048

REACTIONS (5)
  - CARDIAC FAILURE [None]
  - EOSINOPHILIA [None]
  - PRURIGO [None]
  - PRURITUS [None]
  - RASH VESICULAR [None]
